FAERS Safety Report 16171369 (Version 1)
Quarter: 2019Q2

REPORT INFORMATION
  Report Type: Spontaneous
  Country: US (occurrence: US)
  Receive Date: 20190408
  Receipt Date: 20190408
  Transmission Date: 20190711
  Serious: No
  Sender: FDA-Public Use
  Company Number: US-TARO-2019TAR00027

PATIENT
  Sex: Male
  Weight: 81.63 kg

DRUGS (4)
  1. PHENYTOIN ORAL SUSPENSION USP 125 MG/5ML [Suspect]
     Active Substance: PHENYTOIN
     Indication: SEIZURE
     Dosage: 250 MG, 2X/DAY IN THE MORNING AND EVENING
     Route: 048
  2. ASPIRIN. [Concomitant]
     Active Substance: ASPIRIN
  3. PHENYTOIN ORAL SUSPENSION USP 125 MG/5ML [Suspect]
     Active Substance: PHENYTOIN
     Dosage: 187.5 MG, 2X/DAY IN THE MORNING AND EVENING
     Route: 048
  4. MULTIVITAMIN [Concomitant]
     Active Substance: VITAMINS

REACTIONS (5)
  - Inappropriate schedule of product administration [Not Recovered/Not Resolved]
  - Dizziness [Recovering/Resolving]
  - Product quality issue [Unknown]
  - Intentional product use issue [Not Recovered/Not Resolved]
  - Product substitution issue [Not Recovered/Not Resolved]
